FAERS Safety Report 4656191-0 (Version None)
Quarter: 2005Q2

REPORT INFORMATION
  Report Type: 
  Country: None (occurrence: None)
  Receive Date: 20050509
  Receipt Date: 20050203
  Transmission Date: 20051028
  Serious: No
  Sender: FDA-Public Use
  Company Number: US-GLAXOSMITHKLINE-A0543745A

PATIENT
  Sex: Female

DRUGS (4)
  1. AVANDAMET [Suspect]
     Dosage: 1TAB TWICE PER DAY
     Route: 048
     Dates: start: 20030201
  2. GLUCOTROL XL [Concomitant]
  3. HYZAAR [Concomitant]
  4. COZAAR [Concomitant]

REACTIONS (1)
  - CREATININE RENAL CLEARANCE INCREASED [None]
